FAERS Safety Report 4876449-X (Version None)
Quarter: 2005Q4

REPORT INFORMATION
  Report Type: 
  Country: None (occurrence: None)
  Receive Date: 20051206
  Receipt Date: 20051010
  Transmission Date: 20060501
  Serious: No
  Sender: FDA-Public Use
  Company Number: USA0510110446

PATIENT
  Age: 70 Year
  Sex: Female

DRUGS (4)
  1. CYMBALTA [Suspect]
     Indication: FIBROMYALGIA
     Dosage: 60 MG
     Dates: start: 20050301, end: 20050501
  2. VITAMIN PILLS [Concomitant]
  3. WATER PILLS [Concomitant]
  4. LEXAPRO [Concomitant]

REACTIONS (3)
  - CONSTIPATION [None]
  - HYPERTENSION [None]
  - NAUSEA [None]
